FAERS Safety Report 9401233 (Version 1)
Quarter: 2013Q3

REPORT INFORMATION
  Report Type: Spontaneous
  Country: US (occurrence: US)
  Receive Date: 20130715
  Receipt Date: 20130715
  Transmission Date: 20140515
  Serious: Yes (Death)
  Sender: FDA-Public Use
  Company Number: US-TEVA-418031USA

PATIENT
  Sex: Male

DRUGS (4)
  1. PROAIR HFA [Suspect]
     Indication: BRONCHOSPASM
  2. ADVAIR [Concomitant]
  3. SPIRIVA [Concomitant]
  4. HEART MEDICINE [Concomitant]

REACTIONS (1)
  - Small cell carcinoma [Fatal]
